FAERS Safety Report 16021217 (Version 1)
Quarter: 2019Q2

REPORT INFORMATION
  Report Type: Spontaneous
  Country: US (occurrence: US)
  Receive Date: 20190228
  Receipt Date: 20190228
  Transmission Date: 20190711
  Serious: Yes (Life-Threatening)
  Sender: FDA-Public Use
  Company Number: None

PATIENT
  Age: 8 Year
  Sex: Male
  Weight: 26.1 kg

DRUGS (2)
  1. CEFDINIR FOR ORAL SUSPENSION [Suspect]
     Active Substance: CEFDINIR
     Indication: BRONCHITIS
     Dosage: ?          QUANTITY:1 TEASPOON(S);?
     Route: 048
     Dates: start: 20190220, end: 20190226
  2. CEFDINIR FOR ORAL SUSPENSION [Suspect]
     Active Substance: CEFDINIR
     Indication: PNEUMONIA
     Dosage: ?          QUANTITY:1 TEASPOON(S);?
     Route: 048
     Dates: start: 20190220, end: 20190226

REACTIONS (2)
  - Diarrhoea [None]
  - Gastrointestinal haemorrhage [None]

NARRATIVE: CASE EVENT DATE: 20190227
